FAERS Safety Report 17119824 (Version 2)
Quarter: 2019Q4

REPORT INFORMATION
  Report Type: Report from Study
  Country: CA (occurrence: CA)
  Receive Date: 20191206
  Receipt Date: 20191217
  Transmission Date: 20200122
  Serious: Yes (Hospitalization)
  Sender: FDA-Public Use
  Company Number: CA-BIOGEN-2019BI00813420

PATIENT
  Age: 73 Year
  Sex: Male

DRUGS (2)
  1. TYSABRI [Suspect]
     Active Substance: NATALIZUMAB
     Indication: MULTIPLE SCLEROSIS
     Route: 042
     Dates: start: 20130328
  2. FAMPYRA [Suspect]
     Active Substance: DALFAMPRIDINE
     Indication: PRODUCT USED FOR UNKNOWN INDICATION
     Route: 048
     Dates: start: 20140417

REACTIONS (4)
  - Nephrolithiasis [Not Recovered/Not Resolved]
  - Urosepsis [Not Recovered/Not Resolved]
  - Renal haematoma [Not Recovered/Not Resolved]
  - Renal procedural complication [Not Recovered/Not Resolved]

NARRATIVE: CASE EVENT DATE: 201911
